FAERS Safety Report 13966262 (Version 2)
Quarter: 2017Q4

REPORT INFORMATION
  Report Type: Spontaneous
  Country: FR (occurrence: FR)
  Receive Date: 20170913
  Receipt Date: 20171003
  Transmission Date: 20180320
  Serious: Yes (Other)
  Sender: FDA-Public Use
  Company Number: FR-MERCK KGAA-2026049

PATIENT
  Age: 24 Year
  Sex: Female

DRUGS (2)
  1. SPECIAFOLDINE (FOLIC ACID) [Concomitant]
     Active Substance: FOLIC ACID
  2. NOVOTHYROX [Suspect]
     Active Substance: LEVOTHYROXINE SODIUM
     Indication: HYPOTHYROIDISM
     Route: 048
     Dates: start: 201703

REACTIONS (3)
  - Stupor [Not Recovered/Not Resolved]
  - Hypokinesia [Not Recovered/Not Resolved]
  - Constipation [Not Recovered/Not Resolved]

NARRATIVE: CASE EVENT DATE: 20170401
